FAERS Safety Report 4498643-2 (Version None)
Quarter: 2004Q4

REPORT INFORMATION
  Report Type: 
  Country: None (occurrence: None)
  Receive Date: 20041108
  Receipt Date: 20041029
  Transmission Date: 20050328
  Serious: Yes (Other)
  Sender: FDA-Public Use
  Company Number: 2004-10-2083

PATIENT
  Age: 91 Year
  Sex: Female

DRUGS (3)
  1. IMDUR [Suspect]
     Dosage: ORAL
     Route: 048
  2. TICLID [Concomitant]
     Indication: STENT PLACEMENT
  3. NITROGLYCERIN [Concomitant]

REACTIONS (3)
  - CHEST PAIN [None]
  - DIARRHOEA [None]
  - STOOL ANALYSIS ABNORMAL [None]
